FAERS Safety Report 8778586 (Version 1)
Quarter: 2012Q4

REPORT INFORMATION
  Report Type: 
  Country: SE (occurrence: SE)
  Receive Date: 20120912
  Receipt Date: 20120912
  Transmission Date: 20130627
  Serious: Yes (Hospitalization)
  Sender: FDA-Public Use
  Company Number: SE-B.I. PHARMACEUTICALS,INC./RIDGEFIELD-2012-SW-00686SW

PATIENT
  Age: 75 Year
  Sex: Male

DRUGS (8)
  1. PERSANTIN [Suspect]
     Dosage: Formulation: prolonged realease capsule, hard
     Dates: end: 20120605
  2. TROMBYL [Suspect]
     Dates: end: 20120605
  3. MOVICOL [Concomitant]
     Dosage: Formulation: powder for oral solution in sachet
  4. SIMVASTATIN [Concomitant]
  5. CITALOPRAM [Concomitant]
  6. LORATADIN [Concomitant]
  7. BEHEPAN [Concomitant]
     Dosage: Formulation: film-coated tablet
  8. LAXOBERAL [Concomitant]

REACTIONS (3)
  - Nausea [Unknown]
  - Speech disorder [Unknown]
  - Headache [Unknown]
